FAERS Safety Report 19479144 (Version 3)
Quarter: 2024Q2

REPORT INFORMATION
  Report Type: Report from Study
  Country: US (occurrence: US)
  Receive Date: 20210630
  Receipt Date: 20240508
  Transmission Date: 20240716
  Serious: Yes (Other)
  Sender: FDA-Public Use
  Company Number: US-TAKEDA-2021TUS038950

PATIENT
  Sex: Female
  Weight: 88 kg

DRUGS (6)
  1. BRIGATINIB [Suspect]
     Active Substance: BRIGATINIB
     Indication: Lung carcinoma cell type unspecified stage IV
     Dosage: 90 MILLIGRAM
     Route: 065
  2. BRIGATINIB [Suspect]
     Active Substance: BRIGATINIB
     Indication: Metastases to breast
     Dosage: 180 MILLIGRAM, QD
     Route: 065
     Dates: start: 20210601
  3. BRIGATINIB [Suspect]
     Active Substance: BRIGATINIB
     Indication: Lung neoplasm malignant
     Dosage: 180 MILLIGRAM, QD
     Route: 065
     Dates: start: 20210602
  4. BRIGATINIB [Suspect]
     Active Substance: BRIGATINIB
     Dosage: 180 MILLIGRAM, QD
     Route: 065
     Dates: start: 20210618
  5. BRIGATINIB [Suspect]
     Active Substance: BRIGATINIB
     Dosage: 90 MILLIGRAM, QOD
     Route: 048
     Dates: start: 20230825
  6. BRIGATINIB [Suspect]
     Active Substance: BRIGATINIB
     Dosage: 30 MILLIGRAM, QD
     Route: 048

REACTIONS (13)
  - Kidney infection [Not Recovered/Not Resolved]
  - Full blood count increased [Recovered/Resolved]
  - Hypersensitivity [Recovered/Resolved]
  - COVID-19 [Recovering/Resolving]
  - Hordeolum [Unknown]
  - Sinusitis [Unknown]
  - Device breakage [Unknown]
  - Toothache [Unknown]
  - Cystitis [Not Recovered/Not Resolved]
  - Malaise [Not Recovered/Not Resolved]
  - Headache [Unknown]
  - Rash [Not Recovered/Not Resolved]
  - Off label use [Unknown]

NARRATIVE: CASE EVENT DATE: 20210101
